FAERS Safety Report 23945928 (Version 1)
Quarter: 2024Q2

REPORT INFORMATION
  Report Type: Spontaneous
  Country: TR (occurrence: None)
  Receive Date: 20240606
  Receipt Date: 20240606
  Transmission Date: 20240716
  Serious: Yes (Life-Threatening, Hospitalization)
  Sender: FDA-Public Use
  Company Number: TR-INFO-20240161

PATIENT
  Age: 7 Year
  Sex: Female

DRUGS (1)
  1. METRONIDAZOLE [Suspect]
     Active Substance: METRONIDAZOLE
     Indication: Colitis
     Dosage: ()

REACTIONS (2)
  - Vitamin B1 deficiency [Recovered/Resolved]
  - Neurotoxicity [Recovered/Resolved]
